FAERS Safety Report 7999110-1 (Version None)
Quarter: 2011Q4

REPORT INFORMATION
  Report Type: 
  Country: None (occurrence: None)
  Receive Date: 20111221
  Receipt Date: 20111216
  Transmission Date: 20120403
  Serious: Yes (Congenital Anomaly, Other)
  Sender: FDA-Public Use
  Company Number: US-PFIZER INC-2011257683

PATIENT
  Sex: Female
  Weight: 3.77 kg

DRUGS (8)
  1. ZOLOFT [Suspect]
     Indication: DEPRESSION
     Dosage: 50 MG, 1X/DAY
     Route: 064
  2. PAXIL [Concomitant]
     Indication: DEPRESSION
     Dosage: UNK
     Route: 064
     Dates: start: 20010426
  3. AUGMENTIN [Concomitant]
     Indication: SINUSITIS
     Dosage: 875 MG, 2X/DAY
     Route: 064
     Dates: start: 20010110
  4. ZOLOFT [Suspect]
     Dosage: 100 MG, UNK
     Route: 064
  5. ZOLOFT [Suspect]
     Dosage: 75 MG, UNK
     Route: 064
  6. GUAIFENESIN [Concomitant]
     Dosage: UNK
     Route: 064
     Dates: start: 20010110
  7. PSEUDOFED [Concomitant]
     Dosage: UNK
     Route: 064
     Dates: start: 20010110
  8. SIBUTRAMINE [Concomitant]
     Indication: OBESITY
     Dosage: 10 MG, ONCE A DAY WITH FOOD
     Route: 064
     Dates: start: 20010110

REACTIONS (10)
  - MATERNAL EXPOSURE TIMING UNSPECIFIED [None]
  - LEFT VENTRICULAR HYPERTROPHY [None]
  - SEPSIS [None]
  - TRICUSPID VALVE INCOMPETENCE [None]
  - RIGHT ATRIAL DILATATION [None]
  - TRANSPOSITION OF THE GREAT VESSELS [None]
  - PATENT DUCTUS ARTERIOSUS [None]
  - RIGHT VENTRICULAR HYPERTROPHY [None]
  - PULMONARY ARTERY STENOSIS [None]
  - DACRYOSTENOSIS ACQUIRED [None]
